FAERS Safety Report 8082849-X (Version None)
Quarter: 2012Q1

REPORT INFORMATION
  Report Type: 
  Country: None (occurrence: None)
  Receive Date: 20120127
  Receipt Date: 20110208
  Transmission Date: 20120608
  Serious: No
  Sender: FDA-Public Use
  Company Number: US-ABBOTT-11P-163-0700432-00

PATIENT
  Sex: Male

DRUGS (3)
  1. HUMIRA [Suspect]
     Route: 058
  2. HUMIRA [Suspect]
     Indication: COLITIS ULCERATIVE
     Route: 058
     Dates: start: 20110101
  3. HUMIRA [Suspect]
     Route: 058

REACTIONS (3)
  - LIQUID PRODUCT PHYSICAL ISSUE [None]
  - DRUG INEFFECTIVE [None]
  - COLITIS ULCERATIVE [None]
